FAERS Safety Report 4628498-4 (Version None)
Quarter: 2005Q2

REPORT INFORMATION
  Report Type: 
  Country: None (occurrence: None)
  Receive Date: 20050404
  Receipt Date: 20050131
  Transmission Date: 20051028
  Serious: Yes (Other)
  Sender: FDA-Public Use
  Company Number: 805#1#2005-00003

PATIENT
  Age: 3 Day
  Sex: Female

DRUGS (1)
  1. ALPROSTADIL [Suspect]
     Indication: PATENT DUCTUS ARTERIOSUS
     Route: 041
     Dates: start: 20041113, end: 20041118

REACTIONS (3)
  - CONDITION AGGRAVATED [None]
  - NEONATAL APNOEIC ATTACK [None]
  - PATENT DUCTUS ARTERIOSUS [None]
